FAERS Safety Report 8313228-5 (Version None)
Quarter: 2012Q2

REPORT INFORMATION
  Report Type: 
  Country: None (occurrence: None)
  Receive Date: 20120426
  Receipt Date: 20120420
  Transmission Date: 20120825
  Serious: Yes (Other)
  Sender: FDA-Public Use
  Company Number: US-BAYER-2012-039785

PATIENT
  Sex: Female

DRUGS (2)
  1. SARGRAMOSTIM [Suspect]
     Indication: MYELODYSPLASTIC SYNDROME
     Dosage: 250 MICROGRAMS/DAILYX2YRS
  2. SARGRAMOSTIM [Suspect]

REACTIONS (1)
  - WHITE BLOOD CELL DISORDER [None]
